FAERS Safety Report 9478585 (Version 3)
Quarter: 2013Q3

REPORT INFORMATION
  Report Type: Report from Study
  Country: FR (occurrence: FR)
  Receive Date: 20130827
  Receipt Date: 20130924
  Transmission Date: 20140515
  Serious: Yes (Death)
  Sender: FDA-Public Use
  Company Number: FR-PFIZER INC-2012137055

PATIENT
  Age: 69 Year
  Sex: Male
  Weight: 47 kg

DRUGS (4)
  1. CRIZOTINIB [Suspect]
     Indication: BRONCHIAL CARCINOMA
     Dosage: 250 MG, 2X/DAY
     Route: 048
     Dates: start: 20120316
  2. CRIZOTINIB [Suspect]
     Dosage: 250 MG, 1X/DAY
     Dates: start: 20120401
  3. CRIZOTINIB [Suspect]
     Dosage: 250 MG, 2X/DAY
     Dates: start: 20120410, end: 20120709
  4. BI-PROFENID [Concomitant]
     Dosage: 1 DF, IN THE MORNING AND IN THE EVENING

REACTIONS (5)
  - Disease progression [Fatal]
  - Bronchial carcinoma [Fatal]
  - Bone pain [Unknown]
  - Anaemia [Unknown]
  - Face oedema [Recovered/Resolved]
